FAERS Safety Report 23349575 (Version 1)
Quarter: 2023Q4

REPORT INFORMATION
  Report Type: Other
  Country: DE (occurrence: DE)
  Receive Date: 20231229
  Receipt Date: 20231229
  Transmission Date: 20240110
  Serious: Yes (Hospitalization)
  Sender: FDA-Public Use
  Company Number: DE-Accord-396131

PATIENT
  Age: 43 Year
  Sex: Female

DRUGS (6)
  1. RITUXIMAB [Suspect]
     Active Substance: RITUXIMAB
     Indication: Autologous haematopoietic stem cell transplant
     Dosage: 1X 1000MG AS A BRIDGING THERAPY
     Route: 042
  2. CYCLOPHOSPHAMIDE [Suspect]
     Active Substance: CYCLOPHOSPHAMIDE
     Indication: Product used for unknown indication
     Dosage: 750MG/M2
     Route: 065
  3. AMLODIPINE [Concomitant]
     Active Substance: AMLODIPINE BESYLATE
     Indication: Blood pressure measurement
     Dosage: HIGH-DOSE
  4. GRANULOCYTE COLONY-STIMULATING FACTOR NOS [Concomitant]
     Active Substance: GRANULOCYTE COLONY-STIMULATING FACTOR NOS
  5. CAPTOPRIL [Concomitant]
     Active Substance: CAPTOPRIL
     Indication: Blood pressure measurement
     Dosage: HIGH-DOSE
  6. UPADACITINIB [Concomitant]
     Active Substance: UPADACITINIB

REACTIONS (9)
  - Loss of personal independence in daily activities [Unknown]
  - Systemic scleroderma [Unknown]
  - Renal failure [Unknown]
  - Arthralgia [Unknown]
  - Hypertension [Unknown]
  - Haemolysis [Unknown]
  - Red blood cell schistocytes present [Unknown]
  - Musculoskeletal stiffness [Unknown]
  - Autoimmune disorder [Unknown]
